FAERS Safety Report 8732620 (Version 2)
Quarter: 2015Q2

REPORT INFORMATION
  Report Type: Report from Study
  Country: US (occurrence: US)
  Receive Date: 20120820
  Receipt Date: 20150626
  Transmission Date: 20150821
  Serious: Yes (Hospitalization)
  Sender: FDA-Public Use
  Company Number: US-ROCHE-1101580

PATIENT
  Sex: Male

DRUGS (3)
  1. ACTIVASE [Suspect]
     Active Substance: ALTEPLASE
     Route: 042
  2. ACTIVASE [Suspect]
     Active Substance: ALTEPLASE
     Route: 042
  3. ACTIVASE [Suspect]
     Active Substance: ALTEPLASE
     Indication: ACUTE MYOCARDIAL INFARCTION
     Route: 042

REACTIONS (6)
  - Hypotension [Unknown]
  - Nasal pruritus [Unknown]
  - Ventricular extrasystoles [Unknown]
  - Nausea [Unknown]
  - Vomiting [Unknown]
  - Chest pain [Not Recovered/Not Resolved]
